FAERS Safety Report 26059087 (Version 1)
Quarter: 2025Q4

REPORT INFORMATION
  Report Type: Spontaneous
  Country: US (occurrence: US)
  Receive Date: 20251118
  Receipt Date: 20251118
  Transmission Date: 20260118
  Serious: No
  Sender: COLLEGIUM PHARMACEUTICAL
  Company Number: US-COLLEGIUM PHARMACEUTICAL, INC.-20241101403

PATIENT

DRUGS (2)
  1. BELBUCA [Suspect]
     Active Substance: BUPRENORPHINE HYDROCHLORIDE
     Indication: Pain
     Dosage: 150 MICROGRAM, UNKNOWN
     Route: 002
     Dates: start: 20241009, end: 2024
  2. BELBUCA [Suspect]
     Active Substance: BUPRENORPHINE HYDROCHLORIDE
     Dosage: 300 MICROGRAM, UNKNOWN
     Route: 002
     Dates: start: 202411

REACTIONS (5)
  - Drug ineffective [Unknown]
  - Pain [Unknown]
  - Malaise [Unknown]
  - Chills [None]
  - Tremor [Unknown]

NARRATIVE: CASE EVENT DATE: 20241001
